FAERS Safety Report 10025199 (Version 1)
Quarter: 2014Q1

REPORT INFORMATION
  Report Type: Spontaneous
  Country: US (occurrence: None)
  Receive Date: 20140319
  Receipt Date: 20140319
  Transmission Date: 20141002
  Serious: Yes (Other)
  Sender: FDA-Public Use
  Company Number: None

PATIENT
  Age: 44 Year
  Sex: Female

DRUGS (1)
  1. ENBREL [Suspect]
     Route: 058

REACTIONS (5)
  - Lip oedema [None]
  - Inflammation [None]
  - Product packaging issue [None]
  - Product quality issue [None]
  - Drug hypersensitivity [None]
